FAERS Safety Report 18968125 (Version 4)
Quarter: 2021Q3

REPORT INFORMATION
  Report Type: Report from Study
  Country: JP (occurrence: JP)
  Receive Date: 20210304
  Receipt Date: 20210915
  Transmission Date: 20211014
  Serious: Yes (Hospitalization)
  Sender: FDA-Public Use
  Company Number: JP-GLAXOSMITHKLINE-JP2021JPN054658

PATIENT
  Age: 10 Year
  Sex: Female
  Weight: 23.5 kg

DRUGS (27)
  1. MEPOLIZUMAB [Suspect]
     Active Substance: MEPOLIZUMAB
     Indication: ASTHMA
     Dosage: 40 MG, ONCE EVERY 4 WEEKS
     Route: 058
     Dates: start: 20200708, end: 20200708
  2. MEPOLIZUMAB [Suspect]
     Active Substance: MEPOLIZUMAB
     Dosage: 40 MG
     Route: 058
     Dates: start: 20210203, end: 20210203
  3. MEPOLIZUMAB [Suspect]
     Active Substance: MEPOLIZUMAB
     Dosage: 40 MG
     Route: 058
     Dates: start: 20210721, end: 20210721
  4. SERETIDE [Concomitant]
     Active Substance: FLUTICASONE PROPIONATE\SALMETEROL XINAFOATE
     Indication: ASTHMA
     Dosage: 2 INHALATION(200 UG) PER DAY
     Route: 055
  5. MONTELUKAST SODIUM. [Concomitant]
     Active Substance: MONTELUKAST SODIUM
     Dosage: UNK
  6. ALESION [Concomitant]
     Active Substance: EPINASTINE HYDROCHLORIDE
     Dosage: UNK
  7. MEPOLIZUMAB [Suspect]
     Active Substance: MEPOLIZUMAB
     Dosage: 40 MG
     Route: 058
     Dates: start: 20201009, end: 20201009
  8. SINGULAIR CHEWABLE [Concomitant]
     Indication: ASTHMA
     Dosage: 5 MG, 1D
     Route: 048
  9. SHOSEIRYUTO [Concomitant]
     Active Substance: EPHEDRA SINICA STEM\HERBALS
     Indication: ASTHMA
     Dosage: 8 DF, 1D
     Route: 048
     Dates: start: 20210106
  10. MEPOLIZUMAB [Suspect]
     Active Substance: MEPOLIZUMAB
     Dosage: 40 MG
     Route: 058
     Dates: start: 20201109, end: 20201109
  11. MEPOLIZUMAB [Suspect]
     Active Substance: MEPOLIZUMAB
     Dosage: 40 MG
     Route: 058
     Dates: start: 20210106, end: 20210106
  12. MEPOLIZUMAB [Suspect]
     Active Substance: MEPOLIZUMAB
     Dosage: 40 MG
     Route: 058
     Dates: start: 20210331, end: 20210331
  13. THEO?DUR [Concomitant]
     Active Substance: THEOPHYLLINE ANHYDROUS
     Indication: ASTHMA
     Dosage: 200 MG
     Route: 048
  14. XOLAIR [Concomitant]
     Active Substance: OMALIZUMAB
     Indication: ASTHMA
     Dosage: 225 MG, 1D
     Dates: end: 20200708
  15. MEPOLIZUMAB [Suspect]
     Active Substance: MEPOLIZUMAB
     Dosage: 40 MG
     Route: 058
     Dates: start: 20200911, end: 20200911
  16. MEPOLIZUMAB [Suspect]
     Active Substance: MEPOLIZUMAB
     Dosage: 40 MG
     Route: 058
     Dates: start: 20210428, end: 20210428
  17. MEPOLIZUMAB [Suspect]
     Active Substance: MEPOLIZUMAB
     Dosage: 40 MG
     Route: 058
     Dates: start: 20210623, end: 20210623
  18. MEPOLIZUMAB [Suspect]
     Active Substance: MEPOLIZUMAB
     Dosage: 40 MG
     Route: 058
     Dates: start: 20201209, end: 20201209
  19. MEPOLIZUMAB [Suspect]
     Active Substance: MEPOLIZUMAB
     Dosage: 40 MG
     Route: 058
     Dates: start: 20210521, end: 20210521
  20. NASONEX [Concomitant]
     Active Substance: MOMETASONE FUROATE
  21. IPD [Concomitant]
     Active Substance: SUPLATAST TOSILATE
     Indication: ASTHMA
     Dosage: 100 MG, 1D
     Route: 048
  22. PREDONINE [Concomitant]
     Active Substance: PREDNISOLONE
     Indication: ASTHMA
     Dosage: 20 MG, 1D
     Route: 048
     Dates: start: 20210417, end: 20210421
  23. PREDONINE [Concomitant]
     Active Substance: PREDNISOLONE
     Dosage: 20 MG, 1D
     Route: 048
     Dates: start: 20210428, end: 20210430
  24. LORATADINE. [Concomitant]
     Active Substance: LORATADINE
  25. MEPOLIZUMAB [Suspect]
     Active Substance: MEPOLIZUMAB
     Dosage: 40 MG
     Route: 058
     Dates: start: 20200807, end: 20200807
  26. MEPOLIZUMAB [Suspect]
     Active Substance: MEPOLIZUMAB
     Dosage: 40 MG
     Route: 058
     Dates: start: 20210303, end: 20210303
  27. ALLERMIST [Concomitant]
     Active Substance: FLUTICASONE FUROATE
     Dosage: UNK

REACTIONS (6)
  - Asthma [Recovered/Resolved]
  - Bronchitis [Recovered/Resolved]
  - Tonsillitis [Recovered/Resolved]
  - Sinusitis [Recovering/Resolving]
  - Asthma [Recovered/Resolved]
  - Bronchitis [Recovered/Resolved]

NARRATIVE: CASE EVENT DATE: 20201012
